FAERS Safety Report 4732710-0 (Version None)
Quarter: 2005Q3

REPORT INFORMATION
  Report Type: 
  Country: None (occurrence: None)
  Receive Date: 20050801
  Receipt Date: 20050726
  Transmission Date: 20060218
  Serious: Yes (Other)
  Sender: FDA-Public Use
  Company Number: 200510368BYL

PATIENT

DRUGS (1)
  1. ASPIRIN [Suspect]
     Dosage: ORAL
     Route: 048

REACTIONS (3)
  - PROCTALGIA [None]
  - STEVENS-JOHNSON SYNDROME [None]
  - VULVOVAGINAL DISCOMFORT [None]
